FAERS Safety Report 19254475 (Version 2)
Quarter: 2021Q2

REPORT INFORMATION
  Report Type: Spontaneous
  Country: JP (occurrence: JP)
  Receive Date: 20210513
  Receipt Date: 20210527
  Transmission Date: 20210717
  Serious: Yes (Hospitalization)
  Sender: FDA-Public Use
  Company Number: JP-ROCHE-2830398

PATIENT
  Age: 8 Decade
  Sex: Female

DRUGS (8)
  1. AVASTIN [Suspect]
     Active Substance: BEVACIZUMAB
     Indication: NON-SMALL CELL LUNG CANCER
     Dosage: 15 MILLIGRAM, ONCE/3WEEKS
     Route: 041
  2. CARBOPLATIN. [Concomitant]
     Active Substance: CARBOPLATIN
     Indication: NON-SMALL CELL LUNG CANCER
     Route: 041
  3. PACLITAXEL. [Concomitant]
     Active Substance: PACLITAXEL
     Indication: NON-SMALL CELL LUNG CANCER
     Route: 041
  4. AVASTIN [Suspect]
     Active Substance: BEVACIZUMAB
     Route: 041
     Dates: start: 202105
  5. CARBOPLATIN. [Concomitant]
     Active Substance: CARBOPLATIN
     Route: 041
     Dates: start: 202105
  6. PACLITAXEL. [Concomitant]
     Active Substance: PACLITAXEL
     Route: 041
     Dates: start: 202105
  7. TECENTRIQ [Suspect]
     Active Substance: ATEZOLIZUMAB
     Dosage: UNK
     Route: 041
     Dates: start: 202105
  8. TECENTRIQ [Suspect]
     Active Substance: ATEZOLIZUMAB
     Indication: NON-SMALL CELL LUNG CANCER
     Dosage: 1200 MILLIGRAM, ONCE/3WEEKS
     Route: 041
     Dates: end: 2021

REACTIONS (3)
  - Skin disorder [Recovered/Resolved]
  - Pyrexia [Recovered/Resolved]
  - Hepatic function abnormal [Recovered/Resolved]
